FAERS Safety Report 24043780 (Version 2)
Quarter: 2024Q3

REPORT INFORMATION
  Report Type: Spontaneous
  Country: US (occurrence: US)
  Receive Date: 20240703
  Receipt Date: 20240723
  Transmission Date: 20241016
  Serious: Yes (Hospitalization, Other)
  Sender: AUROBINDO
  Company Number: US-MLMSERVICE-20240619-PI103555-00232-1

PATIENT
  Age: 5 Decade
  Sex: Male

DRUGS (3)
  1. PREDNISONE [Suspect]
     Active Substance: PREDNISONE
     Indication: Immunosuppression
     Dosage: 5 MILLIGRAM, ONCE A DAY
     Route: 065
  2. MYCOPHENOLIC ACID [Suspect]
     Active Substance: MYCOPHENOLIC ACID
     Indication: Immunosuppression
     Dosage: UNK
     Route: 065
  3. TACROLIMUS [Suspect]
     Active Substance: TACROLIMUS
     Indication: Immunosuppressant drug therapy
     Dosage: TROUGH LEVEL GOAL OF 5?7 NG/ML
     Route: 065

REACTIONS (3)
  - Acute respiratory failure [Recovering/Resolving]
  - Pleural effusion [Recovering/Resolving]
  - Metastatic squamous cell carcinoma [Recovering/Resolving]

NARRATIVE: CASE EVENT DATE: 20220901
